FAERS Safety Report 20450291 (Version 1)
Quarter: 2022Q1

REPORT INFORMATION
  Report Type: 
  Country: None (occurrence: None)
  Receive Date: 20220209
  Receipt Date: 20220209
  Transmission Date: 20220423
  Serious: Yes (Hospitalization, Other)
  Sender: FDA-Public Use
  Company Number: None

PATIENT
  Age: 86 Year
  Sex: Male

DRUGS (1)
  1. RIFAMPIN [Suspect]
     Active Substance: RIFAMPIN

REACTIONS (4)
  - Post procedural haemorrhage [Recovered/Resolved]
  - Hypoprothrombinaemia [Recovered/Resolved]
  - Prothrombin time prolonged [None]
  - International normalised ratio increased [Recovered/Resolved]
